FAERS Safety Report 6414870-9 (Version None)
Quarter: 2009Q4

REPORT INFORMATION
  Report Type: 
  Country: None (occurrence: None)
  Receive Date: 20091026
  Receipt Date: 20081126
  Transmission Date: 20100525
  Serious: No
  Sender: FDA-Public Use
  Company Number: US-ABBOTT-08P-163-0490012-00

PATIENT
  Sex: Female
  Weight: 72.186 kg

DRUGS (1)
  1. LUPRON DEPOT [Suspect]
     Indication: PELVIC PAIN
     Dates: start: 20080801

REACTIONS (2)
  - BURSITIS [None]
  - MENORRHAGIA [None]
